FAERS Safety Report 7024323-5 (Version None)
Quarter: 2010Q4

REPORT INFORMATION
  Report Type: 
  Country: None (occurrence: None)
  Receive Date: 20101001
  Receipt Date: 20100923
  Transmission Date: 20110411
  Serious: Yes (Hospitalization)
  Sender: FDA-Public Use
  Company Number: FR-ASTRAZENECA-2010SE45085

PATIENT
  Age: 8 Month
  Sex: Male
  Weight: 8.4 kg

DRUGS (4)
  1. NEXIUM [Suspect]
     Indication: GASTROOESOPHAGEAL REFLUX DISEASE
     Route: 048
     Dates: start: 20100401
  2. VENTOLIN [Concomitant]
     Indication: LARYNGITIS
  3. CELESTONE [Concomitant]
     Indication: LARYNGITIS
  4. FLIXOTIDE [Concomitant]
     Indication: LARYNGITIS

REACTIONS (2)
  - CHOLESTASIS [None]
  - TRANSAMINASES INCREASED [None]
